FAERS Safety Report 7084870-7 (Version None)
Quarter: 2010Q4

REPORT INFORMATION
  Report Type: 
  Country: None (occurrence: None)
  Receive Date: 20101103
  Receipt Date: 20101103
  Transmission Date: 20110411
  Serious: No
  Sender: FDA-Public Use
  Company Number: None

PATIENT
  Age: 29 Year
  Sex: Female
  Weight: 57.6068 kg

DRUGS (2)
  1. RITUXIMAB 500MG LOT # 858074 [Suspect]
     Indication: STIFF-MAN SYNDROME
     Dosage: 596MG IST DOSE IV DRIP
     Route: 041
     Dates: start: 20101026, end: 20101026
  2. RITUXIMAB 100MG LOT # 870328 [Suspect]
     Dates: start: 20101026, end: 20101026

REACTIONS (3)
  - HYPERHIDROSIS [None]
  - PAIN [None]
  - PYREXIA [None]
